FAERS Safety Report 6670592-0 (Version None)
Quarter: 2010Q2

REPORT INFORMATION
  Report Type: 
  Country: None (occurrence: None)
  Receive Date: 20100407
  Receipt Date: 20100313
  Transmission Date: 20101027
  Serious: Yes (Other)
  Sender: FDA-Public Use
  Company Number: US-JNJFOC-20090608390

PATIENT
  Age: 70 Year
  Sex: Female

DRUGS (2)
  1. LEVAQUIN [Suspect]
     Indication: PNEUMONIA
     Route: 048
  2. LEVAQUIN [Suspect]
     Route: 042

REACTIONS (1)
  - GOUT [None]
